FAERS Safety Report 24113522 (Version 1)
Quarter: 2024Q3

REPORT INFORMATION
  Report Type: Spontaneous
  Country: IN (occurrence: IN)
  Receive Date: 20240720
  Receipt Date: 20240720
  Transmission Date: 20241017
  Serious: Yes (Life-Threatening, Hospitalization)
  Sender: HETERO
  Company Number: IN-HETERO-HET2024IN02310

PATIENT
  Age: 65 Year
  Sex: Female

DRUGS (3)
  1. TENOFOVIR [Suspect]
     Active Substance: TENOFOVIR
     Indication: HIV infection
     Dosage: UNK
     Route: 065
  2. DOLUTEGRAVIR [Concomitant]
     Active Substance: DOLUTEGRAVIR
     Indication: HIV infection
     Dosage: UNK
     Route: 065
  3. LAMOTRIGINE [Concomitant]
     Active Substance: LAMOTRIGINE
     Indication: HIV infection
     Dosage: UNK
     Route: 065

REACTIONS (6)
  - Hypouricaemia [Recovered/Resolved]
  - Metabolic acidosis [Recovered/Resolved]
  - Renal failure [Not Recovered/Not Resolved]
  - Hip fracture [Recovering/Resolving]
  - Osteoporosis [Unknown]
  - Hypophosphataemia [Recovered/Resolved]
